FAERS Safety Report 7078779-2 (Version None)
Quarter: 2010Q4

REPORT INFORMATION
  Report Type: 
  Country: None (occurrence: None)
  Receive Date: 20101102
  Receipt Date: 20101021
  Transmission Date: 20110411
  Serious: Yes (Other)
  Sender: FDA-Public Use
  Company Number: US-PFIZER INC-2010124863

PATIENT
  Sex: Male

DRUGS (4)
  1. ZOLOFT [Suspect]
     Indication: ANXIETY
     Dosage: 25 MG, 1X/DAY
     Dates: start: 20090820, end: 20090101
  2. ZOLOFT [Suspect]
     Dosage: 50 MG, 1X/DAY
     Dates: start: 20090101, end: 20090101
  3. ZOLOFT [Suspect]
     Dosage: 100 MG, 1X/DAY
     Dates: start: 20090101
  4. NEXIUM [Concomitant]
     Dosage: UNK

REACTIONS (13)
  - ANXIETY [None]
  - ASTHENIA [None]
  - CIRCADIAN RHYTHM SLEEP DISORDER [None]
  - DIZZINESS [None]
  - FEAR [None]
  - FEELING ABNORMAL [None]
  - GAIT DISTURBANCE [None]
  - IMPAIRED DRIVING ABILITY [None]
  - NAUSEA [None]
  - PALPITATIONS [None]
  - PANIC ATTACK [None]
  - PSYCHOMOTOR SKILLS IMPAIRED [None]
  - TREMOR [None]
